FAERS Safety Report 5840386-4 (Version None)
Quarter: 2008Q3

REPORT INFORMATION
  Report Type: 
  Country: None (occurrence: None)
  Receive Date: 20080811
  Receipt Date: 20080731
  Transmission Date: 20090109
  Serious: Yes (Life-Threatening, Hospitalization, Other)
  Sender: FDA-Public Use
  Company Number: JP-WYE-H00975507

PATIENT
  Sex: Female
  Weight: 60 kg

DRUGS (17)
  1. MYLOTARG [Suspect]
     Indication: ACUTE MYELOID LEUKAEMIA RECURRENT
     Route: 041
     Dates: start: 20070808, end: 20070808
  2. SOLANAX [Concomitant]
     Route: 048
     Dates: end: 20070809
  3. SOLANAX [Concomitant]
     Route: 048
     Dates: start: 20070819
  4. MARZULENE [Concomitant]
     Route: 048
     Dates: end: 20070809
  5. MARZULENE [Concomitant]
     Route: 048
     Dates: start: 20070819, end: 20070901
  6. MARZULENE [Concomitant]
     Route: 048
     Dates: start: 20070902
  7. VINCRISTINE SULFATE [Concomitant]
     Indication: ACUTE MYELOID LEUKAEMIA RECURRENT
     Dosage: UNKNOWN
     Route: 042
     Dates: start: 20071215, end: 20080201
  8. CYTARABINE [Suspect]
     Indication: ACUTE MYELOID LEUKAEMIA RECURRENT
     Dosage: UNKNOWN
     Route: 042
     Dates: start: 20071026, end: 20071101
  9. CYTARABINE [Suspect]
     Dosage: UNKNOWN
     Route: 042
     Dates: start: 20071119, end: 20071202
  10. MAGNESIUM OXIDE [Concomitant]
     Route: 048
     Dates: start: 20070819, end: 20070825
  11. MAGNESIUM OXIDE [Concomitant]
     Route: 048
     Dates: start: 20070826
  12. MERCAPTOPURINE [Concomitant]
     Indication: ACUTE MYELOID LEUKAEMIA RECURRENT
     Dosage: UNKNOWN
     Route: 048
     Dates: start: 20071215, end: 20080201
  13. VFEND [Concomitant]
     Route: 048
     Dates: end: 20070809
  14. VFEND [Concomitant]
     Route: 048
     Dates: start: 20070823, end: 20070823
  15. VFEND [Concomitant]
     Route: 048
     Dates: start: 20070824, end: 20070901
  16. VFEND [Concomitant]
     Route: 048
     Dates: start: 20070902
  17. PRAVASTATIN [Concomitant]
     Route: 048
     Dates: start: 20070819, end: 20070825

REACTIONS (5)
  - CONDITION AGGRAVATED [None]
  - GASTROINTESTINAL HAEMORRHAGE [None]
  - HEPATIC FUNCTION ABNORMAL [None]
  - PANCYTOPENIA [None]
  - SEPSIS [None]
